FAERS Safety Report 19672642 (Version 1)
Quarter: 2021Q3

REPORT INFORMATION
  Report Type: Other
  Country: SE (occurrence: SE)
  Receive Date: 20210808
  Receipt Date: 20210808
  Transmission Date: 20211014
  Serious: Yes (Other)
  Sender: FDA-Public Use
  Company Number: SE-CELLTRION INC.-2021SE010327

PATIENT

DRUGS (1)
  1. RITUXIMAB (UNKNOWN) [Suspect]
     Active Substance: RITUXIMAB
     Indication: NEUROMYELITIS OPTICA SPECTRUM DISORDER
     Dosage: 500 MG, EVERY 6 MONTHS
     Route: 065

REACTIONS (6)
  - Visual impairment [Unknown]
  - Headache [Unknown]
  - Swelling [Unknown]
  - Vision blurred [Unknown]
  - Off label use [Unknown]
  - Visual field defect [Unknown]

NARRATIVE: CASE EVENT DATE: 201510
